FAERS Safety Report 7860033-X (Version None)
Quarter: 2011Q4

REPORT INFORMATION
  Report Type: 
  Country: None (occurrence: None)
  Receive Date: 20111025
  Receipt Date: 20111018
  Transmission Date: 20120403
  Serious: Yes (Life-Threatening, Hospitalization)
  Sender: FDA-Public Use
  Company Number: AUR-APL-2011-05506

PATIENT
  Age: 90 Year
  Sex: Male

DRUGS (15)
  1. AMOXICILLIN AND CLAVULANIC ACID, (AMOXICILLIN, CLAVULANIC ACID) [Suspect]
     Indication: SKIN ULCER
     Dosage: 2 DOSAGE FORMS (1 DOSAGE FORMS, 2 IN 1 D), ORAL
     Route: 048
     Dates: start: 20110729, end: 20110805
  2. CLOBETASONE BUTYRATE (CLOBETASONE BUTYRATE) [Concomitant]
  3. CONOTRANE (CONOTRANE /00604301/) [Concomitant]
  4. DOCUSATE SODIUM (DOCUSATE SODIUM) [Concomitant]
  5. GABAPENTIN [Concomitant]
  6. GABAPENTIN [Suspect]
     Indication: CERVICAL MYELOPATHY
     Dosage: 1200 MG (300 MG, 4 IN 1 D), ORAL
     Route: 048
     Dates: start: 20020101, end: 20110815
  7. MOVICOL (NULYTELY   /01053601/) [Concomitant]
  8. ALBUTEROL SULFATE [Concomitant]
  9. FLUTICASONE PROPIONATE/SALMETEROL [Concomitant]
  10. MUPIROCIN [Concomitant]
  11. BETAMETHASONE VALERATE [Concomitant]
  12. ACETAMINOPHEN [Concomitant]
  13. VISCOTEARS (CARBOMER) [Concomitant]
  14. DOXYCYCLINE [Concomitant]
  15. VENTOLIN [Concomitant]

REACTIONS (3)
  - SKIN ULCER [None]
  - NEUTROPENIA [None]
  - WHITE BLOOD CELL COUNT DECREASED [None]
